FAERS Safety Report 23424106 (Version 4)
Quarter: 2024Q1

REPORT INFORMATION
  Report Type: Other
  Country: US (occurrence: None)
  Receive Date: 20240120
  Receipt Date: 20240315
  Transmission Date: 20240410
  Serious: Yes (Other)
  Sender: FDA-Public Use
  Company Number: US-ROCHE-3492651

PATIENT

DRUGS (2)
  1. VABYSMO [Suspect]
     Active Substance: FARICIMAB\FARICIMAB-SVOA
     Indication: Neovascular age-related macular degeneration
     Route: 050
  2. VABYSMO [Suspect]
     Active Substance: FARICIMAB\FARICIMAB-SVOA
     Indication: Diabetic retinal oedema

REACTIONS (8)
  - Ocular hypertension [Unknown]
  - Hypotony of eye [Unknown]
  - Vitreous haemorrhage [Unknown]
  - Eye inflammation [Unknown]
  - Rhegmatogenous retinal detachment [Unknown]
  - Retinal vascular occlusion [Unknown]
  - Vitritis [Unknown]
  - Blindness [Recovering/Resolving]
